FAERS Safety Report 9120961 (Version 2)
Quarter: 2013Q2

REPORT INFORMATION
  Report Type: Spontaneous
  Country: IT (occurrence: IT)
  Receive Date: 20130226
  Receipt Date: 20130410
  Transmission Date: 20140414
  Serious: Yes (Hospitalization)
  Sender: FDA-Public Use
  Company Number: IT-BAYER-2013-024581

PATIENT
  Age: 83 Year
  Sex: Male

DRUGS (5)
  1. CARDIOASPIRIN [Suspect]
     Indication: CORONARY ARTERY BYPASS
     Dosage: 100 MG, QD
     Dates: start: 20030214, end: 20130214
  2. RAMIPRIL [Concomitant]
  3. POTASSIUM CHLORIDE [Concomitant]
     Dosage: 30 MEQ, QD
     Route: 042
  4. MICARDIS [Concomitant]
     Dosage: 40 MG, QD
     Route: 048
  5. INSULIN HUMULIN [Concomitant]
     Dosage: 220 ML, QD
     Route: 058

REACTIONS (2)
  - Coma [Recovering/Resolving]
  - Subdural haematoma [Recovering/Resolving]
